FAERS Safety Report 12633717 (Version 4)
Quarter: 2016Q4

REPORT INFORMATION
  Report Type: Spontaneous
  Country: US (occurrence: US)
  Receive Date: 20160808
  Receipt Date: 20161003
  Transmission Date: 20170207
  Serious: Yes (Other)
  Sender: FDA-Public Use
  Company Number: US-JNJFOC-20160802792

PATIENT
  Sex: Male
  Weight: 113.4 kg

DRUGS (1)
  1. HALDOL [Suspect]
     Active Substance: HALOPERIDOL
     Indication: SEDATION
     Route: 048
     Dates: start: 1963

REACTIONS (5)
  - Tremor [Unknown]
  - Parkinson^s disease [Unknown]
  - Product lot number issue [Unknown]
  - Loss of libido [Unknown]
  - Libido increased [Unknown]
